FAERS Safety Report 24753394 (Version 1)
Quarter: 2024Q4

REPORT INFORMATION
  Report Type: Report from Study
  Country: BR (occurrence: BR)
  Receive Date: 20241219
  Receipt Date: 20241219
  Transmission Date: 20250115
  Serious: Yes (Other)
  Sender: UCB
  Company Number: BR-UCBSA-2024051968

PATIENT
  Age: 37 Year
  Sex: Female

DRUGS (1)
  1. BIMEKIZUMAB [Suspect]
     Active Substance: BIMEKIZUMAB
     Indication: Psoriasis
     Dosage: UNK, 02 PENS EVERY 04 WEEKS
     Route: 058
     Dates: start: 20240927

REACTIONS (2)
  - Erysipelas [Recovering/Resolving]
  - Application site discolouration [Not Recovered/Not Resolved]

NARRATIVE: CASE EVENT DATE: 20240927
